FAERS Safety Report 23759483 (Version 1)
Quarter: 2024Q2

REPORT INFORMATION
  Report Type: Spontaneous
  Country: US (occurrence: None)
  Receive Date: 20240418
  Receipt Date: 20240418
  Transmission Date: 20240716
  Serious: No
  Sender: FDA-Public Use
  Company Number: US-ROCHE-3407774

PATIENT
  Sex: Female
  Weight: 64.468 kg

DRUGS (1)
  1. ESBRIET [Suspect]
     Active Substance: PIRFENIDONE
     Indication: Idiopathic pulmonary fibrosis
     Dosage: 3 PILLS 3 TIMES A DAY
     Route: 048
     Dates: start: 20230621

REACTIONS (1)
  - Nausea [Not Recovered/Not Resolved]
